FAERS Safety Report 4551071-3 (Version None)
Quarter: 2005Q1

REPORT INFORMATION
  Report Type: 
  Country: None (occurrence: None)
  Receive Date: 20050106
  Receipt Date: 20041224
  Transmission Date: 20050727
  Serious: Yes (Life-Threatening)
  Sender: FDA-Public Use
  Company Number: 2004224967JP

PATIENT
  Age: 50 Year
  Sex: Male
  Weight: 60 kg

DRUGS (3)
  1. ADRIACIN (DOXORUBICIN HYDROCHLORIDE) [Suspect]
     Indication: EWING'S SARCOMA
     Dosage: 30 MG (2 CYCLES), INTRAVENOUS
     Route: 042
     Dates: start: 20010917
  2. IFX (IFOSFAMIDE) [Suspect]
     Indication: EWING'S SARCOMA
     Dosage: 3 GRAM (2 CYCLES), INTRAVENOUS
     Route: 042
     Dates: start: 20010917
  3. ETOPOSIDE [Suspect]
     Indication: EWING'S SARCOMA
     Dosage: 150 MG (2 CYCLES), INTRAVENOUS
     Route: 042
     Dates: start: 20011115

REACTIONS (12)
  - BLOOD PRESSURE DECREASED [None]
  - BONE MARROW DEPRESSION [None]
  - CANCER PAIN [None]
  - DISSEMINATED INTRAVASCULAR COAGULATION [None]
  - GENERAL PHYSICAL HEALTH DETERIORATION [None]
  - MALNUTRITION [None]
  - METASTASES TO BONE [None]
  - METASTASES TO LYMPH NODES [None]
  - METASTASES TO SPINE [None]
  - PANCYTOPENIA [None]
  - PARALYSIS [None]
  - PNEUMONIA [None]
